FAERS Safety Report 6748482-4 (Version None)
Quarter: 2010Q2

REPORT INFORMATION
  Report Type: 
  Country: None (occurrence: None)
  Receive Date: 20100526
  Receipt Date: 20081006
  Transmission Date: 20101027
  Serious: No
  Sender: FDA-Public Use
  Company Number: 2008-00114

PATIENT
  Age: 84 Year
  Sex: Female
  Weight: 58.0604 kg

DRUGS (5)
  1. ZICAM COUGH MAX [Suspect]
     Dosage: QD
     Dates: start: 20071001
  2. VERAPAMIL [Concomitant]
  3. HCTZ [Concomitant]
  4. BENAZEPRIL HYDROCHLORIDE [Concomitant]
  5. HUMALOG [Concomitant]

REACTIONS (1)
  - ANOSMIA [None]
